FAERS Safety Report 11285115 (Version 2)
Quarter: 2015Q3

REPORT INFORMATION
  Report Type: Spontaneous
  Country: BR (occurrence: BR)
  Receive Date: 20150720
  Receipt Date: 20150804
  Transmission Date: 20151125
  Serious: Yes (Hospitalization, Other)
  Sender: FDA-Public Use
  Company Number: BR-SA-2015SA102426

PATIENT
  Age: 65 Year
  Sex: Female
  Weight: 72 kg

DRUGS (6)
  1. LANTUS [Suspect]
     Active Substance: INSULIN GLARGINE
     Indication: TYPE 1 DIABETES MELLITUS
     Route: 065
     Dates: start: 2013
  2. SOMALGIN CARDIO [Concomitant]
     Active Substance: ASPIRIN\DIHYDROXYALUMINUM AMINOACETATE ANHYDROUS\MAGNESIUM CARBONATE
     Indication: CARDIAC DISORDER
     Dates: start: 2015
  3. BROMOPRIDE [Concomitant]
     Active Substance: BROMOPRIDE
     Indication: GASTRITIS
     Dates: start: 2015
  4. SIMVASTATIN. [Concomitant]
     Active Substance: SIMVASTATIN
     Indication: BLOOD CHOLESTEROL
     Dates: start: 2014
  5. CLIKSTAR [Concomitant]
     Active Substance: CLIKSTAR
     Dates: start: 2013
  6. PANTOPRAZOLE [Concomitant]
     Active Substance: PANTOPRAZOLE SODIUM
     Indication: GASTRITIS
     Dates: start: 2015

REACTIONS (13)
  - Syncope [Recovered/Resolved]
  - Reflux gastritis [Recovered/Resolved]
  - Choking [Recovered/Resolved]
  - Emotional distress [Recovered/Resolved]
  - Hypertension [Recovered/Resolved]
  - Retinal injury [Not Recovered/Not Resolved]
  - Blindness [Not Recovered/Not Resolved]
  - Cerebrovascular accident [Unknown]
  - Wrong technique in product usage process [Unknown]
  - Fatigue [Recovered/Resolved]
  - Visual impairment [Unknown]
  - Blood glucose increased [Recovered/Resolved]
  - Sluggishness [Recovered/Resolved]

NARRATIVE: CASE EVENT DATE: 2014
